FAERS Safety Report 4827434-5 (Version None)
Quarter: 2005Q4

REPORT INFORMATION
  Report Type: 
  Country: None (occurrence: None)
  Receive Date: 20051110
  Receipt Date: 20051101
  Transmission Date: 20060501
  Serious: Yes (Other)
  Sender: FDA-Public Use
  Company Number: USA-2005-0021771

PATIENT
  Age: 49 Year
  Sex: Female
  Weight: 64.9 kg

DRUGS (4)
  1. MORPHINE SULFATE [Suspect]
     Indication: PAIN
     Dosage: 15 MG, SINGLE, ORAL
     Route: 048
     Dates: start: 20051024, end: 20051024
  2. MORPHINE SULFATE [Suspect]
     Indication: PAIN
     Dosage: 15 MG, SINGLE, ORAL
     Route: 048
     Dates: start: 20051029, end: 20051029
  3. NALOXONE SOLUTION [Concomitant]
  4. NALTREXONE [Concomitant]

REACTIONS (2)
  - ARRHYTHMIA [None]
  - PALPITATIONS [None]
